FAERS Safety Report 9507563 (Version 1)
Quarter: 2013Q3

REPORT INFORMATION
  Report Type: Spontaneous
  Country: US (occurrence: None)
  Receive Date: 20130906
  Receipt Date: 20130906
  Transmission Date: 20140515
  Serious: Yes (Other)
  Sender: FDA-Public Use
  Company Number: None

PATIENT
  Age: 57 Year
  Sex: Male
  Weight: 107.96 kg

DRUGS (6)
  1. DIVALPROEX SODIUM [Suspect]
     Indication: BIPOLAR DISORDER
     Dosage: 3  ONCE DAILY  TAKEN BY MOUTH
     Route: 048
     Dates: start: 20130606, end: 20130905
  2. GLIPIZIDE METEOR [Concomitant]
  3. TRIAMTEREN 5 500 MG [Concomitant]
  4. HCTZ 37.525 MG [Concomitant]
  5. COLNAZEPAM 2 MG [Concomitant]
  6. LOVASTATIN 40 MG [Concomitant]

REACTIONS (1)
  - Diarrhoea [None]
